FAERS Safety Report 19274462 (Version 1)
Quarter: 2021Q2

REPORT INFORMATION
  Report Type: Other
  Country: AU (occurrence: AU)
  Receive Date: 20210519
  Receipt Date: 20210519
  Transmission Date: 20210717
  Serious: Yes (Hospitalization, Other)
  Sender: FDA-Public Use
  Company Number: AU-NUVO PHARMACEUTICALS INC-2110700

PATIENT
  Age: 26 Year
  Sex: Male

DRUGS (1)
  1. SULFASALAZINE. [Suspect]
     Active Substance: SULFASALAZINE
     Indication: CROHN^S DISEASE
     Route: 065

REACTIONS (3)
  - Drug ineffective [Unknown]
  - Neutropenia [Unknown]
  - Muscle necrosis [Recovered/Resolved]
